FAERS Safety Report 7355355-5 (Version None)
Quarter: 2011Q1

REPORT INFORMATION
  Report Type: 
  Country: None (occurrence: None)
  Receive Date: 20110316
  Receipt Date: 20110310
  Transmission Date: 20110831
  Serious: Yes (Hospitalization)
  Sender: FDA-Public Use
  Company Number: NL-MEDIMMUNE-MEDI-0012891

PATIENT
  Sex: Male
  Weight: 5.66 kg

DRUGS (2)
  1. SYNAGIS [Suspect]
     Route: 030
     Dates: start: 20110113, end: 20110113
  2. SYNAGIS [Suspect]
     Route: 030
     Dates: start: 20101118, end: 20101218

REACTIONS (2)
  - DELAYED FONTANELLE CLOSURE [None]
  - CEREBRAL HAEMORRHAGE [None]
